FAERS Safety Report 8026197-2 (Version None)
Quarter: 2012Q1

REPORT INFORMATION
  Report Type: 
  Country: None (occurrence: None)
  Receive Date: 20120105
  Receipt Date: 20111219
  Transmission Date: 20120608
  Serious: Yes (Other)
  Sender: FDA-Public Use
  Company Number: PHHY2011NL114633

PATIENT
  Sex: Male

DRUGS (3)
  1. ZOMETA [Suspect]
     Dosage: 4 MG/100ML ONCE PER 21 DAYS
     Dates: start: 20111219
  2. ZOMETA [Suspect]
     Dosage: 4 MG/100ML ONCE PER 21 DAYS
     Dates: start: 20111128
  3. ZOMETA [Suspect]
     Indication: METASTASIS
     Dosage: 4 MG/100ML ONCE PER 21 DAYS
     Dates: start: 20110317

REACTIONS (1)
  - GENERAL PHYSICAL HEALTH DETERIORATION [None]
